FAERS Safety Report 14019489 (Version 1)
Quarter: 2017Q3

REPORT INFORMATION
  Report Type: Spontaneous
  Country: US (occurrence: US)
  Receive Date: 20170928
  Receipt Date: 20170928
  Transmission Date: 20171128
  Serious: Yes (Other)
  Sender: FDA-Public Use
  Company Number: PHHY2017US140682

PATIENT

DRUGS (12)
  1. PREDNISONE. [Suspect]
     Active Substance: PREDNISONE
     Indication: RENAL TRANSPLANT
     Dosage: UNK
     Route: 065
  2. GANCICLOVIR. [Concomitant]
     Active Substance: GANCICLOVIR
     Indication: ANTIVIRAL PROPHYLAXIS
     Dosage: 5 MG/KG, QD
     Route: 042
  3. MYCOPHENOLATE MOFETIL. [Suspect]
     Active Substance: MYCOPHENOLATE MOFETIL
     Indication: IMMUNOSUPPRESSANT DRUG THERAPY
  4. TRIMETHOPRIM SULFAMETHOXAZOLE [Concomitant]
     Active Substance: SULFAMETHOXAZOLE\TRIMETHOPRIM
     Indication: ANTIBIOTIC PROPHYLAXIS
     Dosage: 2 MG/KG OF TRIMETHOPRIM COMPONENET FOR 6 MONTHS
     Route: 065
  5. IMMUNOGLOBULIN (IMMUNOGLOBULIN HUMAN NORMAL) [Concomitant]
     Active Substance: HUMAN IMMUNOGLOBULIN G
     Indication: RENAL TRANSPLANT
     Dosage: 2 G/KG, 10-14 DAYS AFTER TRANSPLANTATION
     Route: 065
  6. FLUCONAZOLE. [Concomitant]
     Active Substance: FLUCONAZOLE
     Indication: ANTIFUNGAL PROPHYLAXIS
     Dosage: 2 MG/KG, QD
     Route: 065
  7. MYCOPHENOLATE MOFETIL. [Suspect]
     Active Substance: MYCOPHENOLATE MOFETIL
     Indication: RENAL TRANSPLANT
     Dosage: 600 MG/M2, IN TWO DIVIDED DOSES
     Route: 065
  8. TACROLIMUS. [Suspect]
     Active Substance: TACROLIMUS
     Indication: IMMUNOSUPPRESSANT DRUG THERAPY
     Dosage: 6-12 NG/ML, FOR MONTHS 6-12
     Route: 065
  9. PREDNISONE. [Suspect]
     Active Substance: PREDNISONE
     Indication: IMMUNOSUPPRESSANT DRUG THERAPY
  10. TACROLIMUS. [Suspect]
     Active Substance: TACROLIMUS
     Indication: RENAL TRANSPLANT
     Dosage: 7-9 NG/ML, FOR FIRST 6 MONTHS
     Route: 065
  11. TACROLIMUS. [Suspect]
     Active Substance: TACROLIMUS
     Dosage: 4-6 NG/ML, FOR REMAINING MONTHS THEREAFTER
     Route: 065
  12. VALGANCICLOVIR. [Concomitant]
     Active Substance: VALGANCICLOVIR
     Indication: ANTIVIRAL PROPHYLAXIS
     Dosage: 7 X BSA X SERUM CREATININE, QD (FOR 6 MONTHS OF TOTAL TREATMENT)
     Route: 065

REACTIONS (1)
  - Chronic allograft nephropathy [Unknown]
